FAERS Safety Report 13726524 (Version 1)
Quarter: 2017Q3

REPORT INFORMATION
  Report Type: Spontaneous
  Country: US (occurrence: US)
  Receive Date: 20170707
  Receipt Date: 20170707
  Transmission Date: 20171127
  Serious: No
  Sender: FDA-Public Use
  Company Number: None

PATIENT
  Age: 64 Year
  Sex: Female
  Weight: 58.97 kg

DRUGS (22)
  1. SYNTHROID [Concomitant]
     Active Substance: LEVOTHYROXINE SODIUM
  2. VITAMIN B COMPLEX [Concomitant]
     Active Substance: CYANOCOBALAMIN\DEXPANTHENOL\NIACINAMIDE\PYRIDOXINE HYDROCHLORIDE\RIBOFLAVIN 5^-PHOSPHATE SODIUM\THIAMINE HYDROCHLORIDE\VITAMIN B COMPLEX
  3. SYSTANE BALANCE [Concomitant]
     Active Substance: PROPYLENE GLYCOL
  4. CLOBETASOL PROPIONATE. [Concomitant]
     Active Substance: CLOBETASOL PROPIONATE
  5. FLUOCINOLONE ACETONIDE 0.01% TOPICAL OIL (BODY OIL) [Suspect]
     Active Substance: FLUOCINOLONE ACETONIDE
     Indication: ALOPECIA AREATA
     Dosage: DOSE - ROUTE - FREQUENCY - SHAKE AND APPLY LIGHTLY TO SCALP - TOPICAL - IN PM ONCE A DAY
     Route: 061
     Dates: start: 20170619, end: 20170620
  6. CHROMIUM [Concomitant]
     Active Substance: CHROMIC CHLORIDE\CHROMIUM
  7. FLAXSEED [Concomitant]
     Active Substance: FLAX SEED
  8. ROGAINE [Concomitant]
     Active Substance: MINOXIDIL
  9. FLUTICASONE PROPIONATE. [Concomitant]
     Active Substance: FLUTICASONE PROPIONATE
  10. BIOTIN [Concomitant]
     Active Substance: BIOTIN
  11. SELENIUM [Concomitant]
     Active Substance: SELENIUM
  12. PURE MSM LIQUID [Concomitant]
  13. NEURONTIN [Concomitant]
     Active Substance: GABAPENTIN
  14. SPIRONOLACTONE. [Concomitant]
     Active Substance: SPIRONOLACTONE
  15. PREVIDENT [Concomitant]
     Active Substance: SODIUM FLUORIDE
  16. ACIDOPHILUS [Concomitant]
     Active Substance: LACTOBACILLUS ACIDOPHILUS
  17. TRAMADOL ER [Concomitant]
     Active Substance: TRAMADOL HYDROCHLORIDE
  18. PROZAC [Concomitant]
     Active Substance: FLUOXETINE HYDROCHLORIDE
  19. FINASTERIDE. [Concomitant]
     Active Substance: FINASTERIDE
  20. MAG OX [Concomitant]
     Active Substance: MAGNESIUM OXIDE
  21. VITAMIN D3 [Concomitant]
     Active Substance: CHOLECALCIFEROL
  22. VITAMIN E [Concomitant]
     Active Substance: .ALPHA.-TOCOPHEROL

REACTIONS (7)
  - Skin irritation [None]
  - Burning sensation [None]
  - Asthenia [None]
  - Product container seal issue [None]
  - Product odour abnormal [None]
  - Product substitution issue [None]
  - Headache [None]

NARRATIVE: CASE EVENT DATE: 20170619
